FAERS Safety Report 8241720-0 (Version None)
Quarter: 2012Q1

REPORT INFORMATION
  Report Type: 
  Country: None (occurrence: None)
  Receive Date: 20120328
  Receipt Date: 20120326
  Transmission Date: 20120608
  Serious: No
  Sender: FDA-Public Use
  Company Number: US-PFIZER INC-2012078058

PATIENT
  Sex: Female
  Weight: 40.816 kg

DRUGS (6)
  1. LISINOPRIL [Concomitant]
     Indication: ARTERIAL DISORDER
     Dosage: 5 MG, DAILY
  2. METOPROLOL [Concomitant]
     Indication: ARTERIAL DISORDER
     Dosage: 5 MG, DAILY
  3. PLAVIX [Concomitant]
     Indication: ARTERIAL DISORDER
     Dosage: 75 MG, DAILY
  4. CHANTIX [Suspect]
     Indication: SMOKING CESSATION THERAPY
     Dosage: UNK
     Dates: start: 20100101, end: 20101001
  5. ACETYLSALICYLIC ACID [Concomitant]
     Indication: ARTERIAL DISORDER
     Dosage: 81 MG, DAILY
  6. LIPITOR [Concomitant]
     Indication: ARTERIAL DISORDER
     Dosage: 10 MG, DAILY

REACTIONS (2)
  - ABNORMAL DREAMS [None]
  - STRESS [None]
